FAERS Safety Report 9401932 (Version 4)
Quarter: 2013Q4

REPORT INFORMATION
  Report Type: Spontaneous
  Country: US (occurrence: US)
  Receive Date: 20130716
  Receipt Date: 20131031
  Transmission Date: 20140711
  Serious: No
  Sender: FDA-Public Use
  Company Number: US-PFIZER INC-2013205287

PATIENT
  Age: 78 Year
  Sex: Female
  Weight: 57.6 kg

DRUGS (11)
  1. SUTENT [Suspect]
     Indication: METASTATIC RENAL CELL CARCINOMA
     Dosage: 50 MG, 1X/DAY
     Dates: start: 20130617
  2. SUTENT [Suspect]
     Dosage: 50 MG, CYCLIC (CHANGED REGIMEN 4 WEEKS ON AND TWO WEEKS OFF TO 1 WEEK ON AND 1 WEEK OFF)
  3. PRILOSEC [Concomitant]
     Dosage: UNK
  4. PREDNISONE [Concomitant]
     Dosage: UNK
  5. MORPHIN [Concomitant]
     Dosage: UNK
  6. LOPRESSOR [Concomitant]
     Dosage: UNK
  7. COLACE [Concomitant]
     Dosage: UNK
  8. TIMOLOL [Concomitant]
     Dosage: 1 GTT, UNK
  9. LATANOPROST [Concomitant]
     Dosage: 1 GTT, UNK
  10. TYLENOL [Concomitant]
     Dosage: UNK
  11. ZOFRAN [Concomitant]
     Dosage: UNK

REACTIONS (19)
  - Fatigue [Not Recovered/Not Resolved]
  - Nausea [Unknown]
  - Stomatitis [Recovering/Resolving]
  - Dysgeusia [Recovering/Resolving]
  - Gastrointestinal motility disorder [Unknown]
  - Dry skin [Unknown]
  - Skin exfoliation [Unknown]
  - Dry mouth [Unknown]
  - Epistaxis [Unknown]
  - Insomnia [Unknown]
  - Thirst [Unknown]
  - Feeling abnormal [Unknown]
  - Glossodynia [Recovering/Resolving]
  - Weight decreased [Unknown]
  - Tremor [Unknown]
  - Alopecia [Unknown]
  - Oral pain [Unknown]
  - Disease progression [Unknown]
  - Metastatic renal cell carcinoma [Unknown]
